FAERS Safety Report 15947086 (Version 1)
Quarter: 2019Q1

REPORT INFORMATION
  Report Type: Spontaneous
  Country: US (occurrence: US)
  Receive Date: 20190211
  Receipt Date: 20190211
  Transmission Date: 20190417
  Serious: No
  Sender: FDA-Public Use
  Company Number: US-PFIZER INC-2019060866

PATIENT
  Age: 56 Year
  Sex: Male

DRUGS (1)
  1. GENOTROPIN MQ [Suspect]
     Active Substance: SOMATROPIN
     Indication: HYPOGONADISM
     Dosage: 0.2 MG, DAILY

REACTIONS (5)
  - Blood triglycerides increased [Unknown]
  - Product use in unapproved indication [Unknown]
  - High density lipoprotein decreased [Unknown]
  - Blood thyroid stimulating hormone decreased [Unknown]
  - Very low density lipoprotein increased [Unknown]

NARRATIVE: CASE EVENT DATE: 20180718
